FAERS Safety Report 9367402 (Version 1)
Quarter: 2013Q2

REPORT INFORMATION
  Report Type: Spontaneous
  Country: FR (occurrence: FR)
  Receive Date: 20130625
  Receipt Date: 20130625
  Transmission Date: 20140414
  Serious: Yes (Hospitalization)
  Sender: FDA-Public Use
  Company Number: FR-UCBSA-089399

PATIENT
  Age: 84 Year
  Sex: Female

DRUGS (8)
  1. KEPPRA [Suspect]
     Route: 048
     Dates: start: 20130528
  2. KEPPRA [Suspect]
     Route: 048
     Dates: start: 20130414, end: 20130515
  3. TIENAM [Suspect]
     Dosage: 3G DAILY
     Route: 042
     Dates: start: 20130328, end: 20130515
  4. CIFLOX [Suspect]
     Route: 042
     Dates: start: 20130328, end: 20130509
  5. VANCOMYCINE [Suspect]
     Dosage: 500MG DAILY
     Route: 042
     Dates: start: 20130328, end: 20130515
  6. LASILIX FAIBLE [Concomitant]
     Dosage: 20MG DAILY
     Route: 048
     Dates: start: 20130404, end: 20130415
  7. RIVOTRIL [Concomitant]
     Indication: STATUS EPILEPTICUS
  8. URBANYL [Concomitant]
     Indication: STATUS EPILEPTICUS

REACTIONS (3)
  - Rash morbilliform [Not Recovered/Not Resolved]
  - Agranulocytosis [Not Recovered/Not Resolved]
  - Thrombocytopenia [Recovered/Resolved]
